FAERS Safety Report 9989119 (Version 2)
Quarter: 2014Q1

REPORT INFORMATION
  Report Type: Report from Study
  Country: PR (occurrence: PR)
  Receive Date: 20140310
  Receipt Date: 20140310
  Transmission Date: 20141002
  Serious: No
  Sender: FDA-Public Use
  Company Number: PR-ABBVIE-13P-131-1032232-00

PATIENT
  Age: 67 Year
  Sex: Female
  Weight: 78.09 kg

DRUGS (4)
  1. HUMIRA [Suspect]
     Indication: RHEUMATOID ARTHRITIS
     Route: 058
     Dates: start: 201209, end: 201209
  2. HUMIRA [Suspect]
     Indication: OSTEOPOROSIS
     Dates: start: 201301, end: 201305
  3. HUMIRA [Suspect]
     Dates: start: 201307
  4. COUMADIN [Concomitant]
     Indication: CATHETER PLACEMENT
     Route: 048

REACTIONS (3)
  - Infection [Unknown]
  - Urinary tract infection [Recovered/Resolved]
  - Nasopharyngitis [Recovered/Resolved]
